FAERS Safety Report 18193188 (Version 1)
Quarter: 2020Q3

REPORT INFORMATION
  Report Type: Spontaneous
  Country: US (occurrence: US)
  Receive Date: 20200825
  Receipt Date: 20200825
  Transmission Date: 20201103
  Serious: Yes (Hospitalization, Other)
  Sender: FDA-Public Use
  Company Number: US-BRISTOL-MYERS SQUIBB COMPANY-BMS-2020-067243

PATIENT
  Sex: Male
  Weight: 49.9 kg

DRUGS (1)
  1. ELIQUIS [Suspect]
     Active Substance: APIXABAN
     Indication: CEREBROVASCULAR ACCIDENT PROPHYLAXIS
     Dosage: 5 MILLIGRAM, QD
     Route: 048

REACTIONS (8)
  - Staphylococcal infection [Unknown]
  - Diverticulitis [Unknown]
  - Spinal stenosis [Unknown]
  - Off label use [Unknown]
  - Weight decreased [Unknown]
  - Myasthenia gravis [Unknown]
  - Oesophageal disorder [Unknown]
  - Thrombosis [Unknown]
